FAERS Safety Report 8054164-1 (Version None)
Quarter: 2012Q1

REPORT INFORMATION
  Report Type: 
  Country: None (occurrence: None)
  Receive Date: 20120118
  Receipt Date: 20120110
  Transmission Date: 20120608
  Serious: Yes (Death, Hospitalization)
  Sender: FDA-Public Use
  Company Number: US-BRISTOL-MYERS SQUIBB COMPANY-16282584

PATIENT
  Age: 51 Year
  Sex: Male

DRUGS (1)
  1. SPRYCEL [Suspect]
     Indication: CHRONIC MYELOID LEUKAEMIA
     Dosage: THERAPY DURATION: APPROX. 3 1/2 MONTHS.
     Route: 048
     Dates: start: 20110811

REACTIONS (5)
  - SUBDURAL HAEMATOMA [None]
  - ENCEPHALOMYELITIS [None]
  - SEPSIS [None]
  - PNEUMONIA [None]
  - MENINGITIS [None]
